FAERS Safety Report 9805287 (Version 2)
Quarter: 2014Q1

REPORT INFORMATION
  Report Type: Report from Study
  Country: CA (occurrence: CA)
  Receive Date: 20140109
  Receipt Date: 20140109
  Transmission Date: 20141002
  Serious: Yes (Hospitalization, Other)
  Sender: FDA-Public Use
  Company Number: CA-ROCHE-1001337

PATIENT
  Age: 47 Year
  Sex: Female
  Weight: 108 kg

DRUGS (14)
  1. TOCILIZUMAB [Suspect]
     Indication: RHEUMATOID ARTHRITIS
     Route: 042
     Dates: start: 20101209, end: 20120329
  2. RITUXAN [Suspect]
     Indication: RHEUMATOID ARTHRITIS
     Route: 042
     Dates: start: 20121012
  3. SYNTHROID [Concomitant]
  4. EFFEXOR [Concomitant]
  5. RIVOTRIL [Concomitant]
     Route: 065
  6. METHOTREXATE [Concomitant]
  7. NEXIUM [Concomitant]
  8. CORGARD (NADOLOL) [Concomitant]
     Indication: BLOOD PRESSURE
  9. MAXALT [Concomitant]
  10. NAPROXEN [Concomitant]
     Route: 065
  11. FOLIC ACID [Concomitant]
  12. DIPHENHYDRAMINE HCL [Concomitant]
     Indication: PREMEDICATION
     Dosage: 1 IN 1 TOTAL
     Route: 048
     Dates: start: 20121012
  13. ACETAMINOPHEN [Concomitant]
     Indication: PREMEDICATION
     Dosage: 1 IN 1 TOTAL
     Route: 048
     Dates: start: 20121012
  14. METHYLPREDNISOLONE [Concomitant]
     Indication: PREMEDICATION
     Dosage: 1 IN 1 TOTAL
     Route: 042
     Dates: start: 20121012

REACTIONS (21)
  - Pneumonia [Not Recovered/Not Resolved]
  - Drug ineffective [Unknown]
  - Fatigue [Not Recovered/Not Resolved]
  - Diarrhoea [Not Recovered/Not Resolved]
  - Pain [Not Recovered/Not Resolved]
  - Blood pressure decreased [Unknown]
  - Acne [Not Recovered/Not Resolved]
  - Hidradenitis [Unknown]
  - Acne [Not Recovered/Not Resolved]
  - Musculoskeletal stiffness [Not Recovered/Not Resolved]
  - Fatigue [Unknown]
  - Asthenia [Unknown]
  - Asthenia [Unknown]
  - Asthenia [Unknown]
  - Tooth extraction [Unknown]
  - Rash [Not Recovered/Not Resolved]
  - Arthralgia [Not Recovered/Not Resolved]
  - Blood iron decreased [Unknown]
  - Weight increased [Not Recovered/Not Resolved]
  - Pruritus [Unknown]
  - Condition aggravated [Not Recovered/Not Resolved]
